FAERS Safety Report 9622907 (Version 1)
Quarter: 2013Q4

REPORT INFORMATION
  Report Type: Spontaneous
  Country: US (occurrence: None)
  Receive Date: 20131010
  Receipt Date: 20131010
  Transmission Date: 20140711
  Serious: Yes (Hospitalization)
  Sender: FDA-Public Use
  Company Number: 1933403

PATIENT
  Age: 54 Year
  Sex: Male

DRUGS (11)
  1. DEXMEDETOMIDINE [Suspect]
     Indication: INDUCTION OF ANAESTHESIA
  2. FENTANYL CITRATE [Suspect]
     Indication: INDUCTION OF ANAESTHESIA
  3. LIDOCAINE HYDROCHLORIDE [Suspect]
     Indication: INDUCTION OF ANAESTHESIA
  4. MIDAZOLAM [Suspect]
     Indication: INDUCTION OF ANAESTHESIA
  5. PROPOFOL [Suspect]
     Indication: INDUCTION OF ANAESTHESIA
  6. SUXAMETHONIUM CHLORIDE [Suspect]
     Indication: INDUCTION OF ANAESTHESIA
  7. SUFENTANIL [Suspect]
     Indication: INDUCTION OF ANAESTHESIA
  8. VANCOMYCIN HYDROCHLORIDE [Suspect]
  9. VECURONIUM BROMIDE [Suspect]
     Indication: INDUCTION OF ANAESTHESIA
  10. CISATRACURIUM [Suspect]
     Indication: INDUCTION OF ANAESTHESIA
  11. LINEZOLID [Suspect]

REACTIONS (2)
  - Anaphylactic reaction [None]
  - Mastocytosis [None]
